FAERS Safety Report 21445096 (Version 1)
Quarter: 2022Q4

REPORT INFORMATION
  Report Type: Spontaneous
  Country: US (occurrence: US)
  Receive Date: 20221012
  Receipt Date: 20221012
  Transmission Date: 20230113
  Serious: Yes (Other)
  Sender: FDA-Public Use
  Company Number: US-NOVARTISPH-NVSC2022US226205

PATIENT
  Age: 81 Year
  Sex: Female

DRUGS (25)
  1. TOBRAMYCIN [Suspect]
     Active Substance: TOBRAMYCIN
     Indication: Necrotising scleritis
     Dosage: UNK, Q2H (FORTIFIED VANCOMYCIN AND TOBRAMYCIN EYEDROPS ALTERNATING EVERY HOUR)
     Route: 065
  2. TOBRAMYCIN [Suspect]
     Active Substance: TOBRAMYCIN
     Indication: Pseudomonas infection
     Dosage: UNK (FORTIFIED TOBRAMYCIN)
     Route: 065
  3. TOBRAMYCIN [Suspect]
     Active Substance: TOBRAMYCIN
     Indication: Infective scleritis
  4. VANCOMYCIN [Suspect]
     Active Substance: VANCOMYCIN
     Indication: Necrotising scleritis
     Dosage: UNK, Q2H (FORTIFIED VANCOMYCIN AND TOBRAMYCIN EYEDROPS ALTERNATING EVERY HOUR)
     Route: 065
  5. VANCOMYCIN [Suspect]
     Active Substance: VANCOMYCIN
     Indication: Pseudomonas infection
     Dosage: UNK
     Route: 042
  6. VANCOMYCIN [Suspect]
     Active Substance: VANCOMYCIN
     Indication: Infective scleritis
  7. DORZOLAMIDE AND TIMOLOL [Suspect]
     Active Substance: DORZOLAMIDE HYDROCHLORIDE\TIMOLOL MALEATE
     Indication: Intraocular pressure increased
     Dosage: UNK
     Route: 061
  8. PREDNISOLONE ACETATE [Suspect]
     Active Substance: PREDNISOLONE ACETATE
     Indication: Necrotising scleritis
     Dosage: UNK, BID (WAS ADDED ON THE THIRD DAY OF ANTIBIOTICS)
     Route: 061
  9. PREDNISOLONE ACETATE [Suspect]
     Active Substance: PREDNISOLONE ACETATE
     Indication: Pseudomonas infection
  10. PREDNISOLONE ACETATE [Suspect]
     Active Substance: PREDNISOLONE ACETATE
     Indication: Infective scleritis
  11. CIPROFLOXACIN [Suspect]
     Active Substance: CIPROFLOXACIN
     Indication: Necrotising scleritis
     Dosage: 500 MG, BID
     Route: 048
  12. CIPROFLOXACIN [Suspect]
     Active Substance: CIPROFLOXACIN
     Indication: Pseudomonas infection
  13. CIPROFLOXACIN [Suspect]
     Active Substance: CIPROFLOXACIN
     Indication: Infective scleritis
  14. DIFLUPREDNATE [Suspect]
     Active Substance: DIFLUPREDNATE
     Indication: Necrotising scleritis
     Dosage: UNK, QID
     Route: 065
  15. DIFLUPREDNATE [Suspect]
     Active Substance: DIFLUPREDNATE
     Indication: Pseudomonas infection
  16. DIFLUPREDNATE [Suspect]
     Active Substance: DIFLUPREDNATE
     Indication: Infective scleritis
  17. ATROPINE [Suspect]
     Active Substance: ATROPINE
     Indication: Necrotising scleritis
     Dosage: UNK, QD
     Route: 061
  18. ATROPINE [Suspect]
     Active Substance: ATROPINE
     Indication: Pseudomonas infection
  19. ATROPINE [Suspect]
     Active Substance: ATROPINE
     Indication: Infective scleritis
  20. CEFEPIME [Suspect]
     Active Substance: CEFEPIME HYDROCHLORIDE
     Indication: Necrotising scleritis
     Dosage: UNK
     Route: 065
  21. CEFEPIME [Suspect]
     Active Substance: CEFEPIME HYDROCHLORIDE
     Indication: Pseudomonas infection
  22. CEFEPIME [Suspect]
     Active Substance: CEFEPIME HYDROCHLORIDE
     Indication: Infective scleritis
  23. CEFTAZIDIME [Suspect]
     Active Substance: CEFTAZIDIME
     Indication: Necrotising scleritis
     Dosage: UNK, QH (HOURLY)
     Route: 065
  24. CEFTAZIDIME [Suspect]
     Active Substance: CEFTAZIDIME
     Indication: Pseudomonas infection
  25. CEFTAZIDIME [Suspect]
     Active Substance: CEFTAZIDIME
     Indication: Infective scleritis

REACTIONS (5)
  - Necrotising scleritis [Recovering/Resolving]
  - Pseudomonas infection [Recovering/Resolving]
  - Infective scleritis [Recovering/Resolving]
  - Disease progression [Recovering/Resolving]
  - Product use in unapproved indication [Unknown]
